FAERS Safety Report 4338116-0 (Version None)
Quarter: 2004Q2

REPORT INFORMATION
  Report Type: 
  Country: None (occurrence: None)
  Receive Date: 20040413
  Receipt Date: 20040413
  Transmission Date: 20050107
  Serious: No
  Sender: FDA-Public Use
  Company Number: None

PATIENT
  Age: 79 Year
  Sex: Female
  Weight: 33.5662 kg

DRUGS (7)
  1. COREG [Suspect]
     Indication: CARDIAC FAILURE CONGESTIVE
     Dosage: BID PO 3.125 MG
     Route: 048
     Dates: start: 20031111, end: 20040226
  2. METOPROLOL [Suspect]
     Indication: CARDIAC FAILURE CONGESTIVE
     Dosage: 12.5 MG PO QD
     Route: 048
     Dates: start: 20040408, end: 20040412
  3. LISINOPRIL [Concomitant]
  4. LASIX [Concomitant]
  5. KCL TAB [Concomitant]
  6. ASPIRIN [Concomitant]
  7. PROTONIX [Concomitant]

REACTIONS (4)
  - BLEPHARITIS [None]
  - INFLAMMATION [None]
  - LACRIMATION INCREASED [None]
  - PHOTOSENSITIVITY REACTION [None]
